FAERS Safety Report 11673139 (Version 1)
Quarter: 2015Q4

REPORT INFORMATION
  Report Type: Spontaneous
  Country: US (occurrence: None)
  Receive Date: 20151027
  Receipt Date: 20151027
  Transmission Date: 20160304
  Serious: Yes (Other)
  Sender: FDA-Public Use
  Company Number: None

PATIENT
  Age: 9 Year
  Sex: Female
  Weight: 27 kg

DRUGS (1)
  1. KETAMINE [Suspect]
     Active Substance: KETAMINE
     Indication: SEDATION
     Dates: start: 20151012, end: 20151012

REACTIONS (3)
  - Dyskinesia [None]
  - Excessive eye blinking [None]
  - Seizure [None]

NARRATIVE: CASE EVENT DATE: 20151012
